FAERS Safety Report 22056670 (Version 1)
Quarter: 2023Q1

REPORT INFORMATION
  Report Type: Spontaneous
  Country: US (occurrence: US)
  Receive Date: 20230302
  Receipt Date: 20230302
  Transmission Date: 20230417
  Serious: Yes (Hospitalization)
  Sender: FDA-Public Use
  Company Number: US-NOVOPROD-1027258

PATIENT
  Age: 65 Year
  Sex: Female
  Weight: 109.75 kg

DRUGS (1)
  1. OZEMPIC [Suspect]
     Active Substance: SEMAGLUTIDE
     Indication: Product used for unknown indication
     Dosage: UNK
     Route: 058
     Dates: start: 20220825

REACTIONS (1)
  - Hyperparathyroidism [Unknown]

NARRATIVE: CASE EVENT DATE: 20230104
